FAERS Safety Report 8006698-3 (Version None)
Quarter: 2011Q4

REPORT INFORMATION
  Report Type: 
  Country: None (occurrence: None)
  Receive Date: 20111227
  Receipt Date: 20111215
  Transmission Date: 20120403
  Serious: Yes (Other)
  Sender: FDA-Public Use
  Company Number: CA-JNJFOC-20111208577

PATIENT
  Sex: Female
  Weight: 139 kg

DRUGS (8)
  1. RAMIPRIL [Concomitant]
  2. OTHER THERAPEUTIC MEDICATION [Concomitant]
  3. REMICADE [Suspect]
     Indication: CROHN'S DISEASE
     Dates: start: 20081001
  4. SIMVASTATIN [Concomitant]
  5. WARFARIN SODIUM [Concomitant]
  6. LANTUS [Concomitant]
  7. VITAMIN B-12 [Concomitant]
  8. METFORMIN HCL [Concomitant]

REACTIONS (1)
  - COLONIC POLYP [None]
